FAERS Safety Report 8664423 (Version 2)
Quarter: 2012Q4

REPORT INFORMATION
  Report Type: 
  Country: US (occurrence: US)
  Receive Date: 20120713
  Receipt Date: 20121128
  Transmission Date: 20130627
  Serious: Yes (Other)
  Sender: FDA-Public Use
  Company Number: US-JNJFOC-20120703693

PATIENT
  Age: 85 Year
  Sex: Female
  Weight: 97 kg

DRUGS (3)
  1. XARELTO [Suspect]
     Indication: THROMBOSIS PROPHYLAXIS
     Route: 048
  2. XARELTO [Suspect]
     Indication: HIP ARTHROPLASTY
     Route: 048
  3. TORADOL [Suspect]
     Indication: PRODUCT USED FOR UNKNOWN INDICATION

REACTIONS (3)
  - Haemoglobin decreased [Unknown]
  - Blood creatinine increased [Unknown]
  - Oesophagitis [Unknown]
